FAERS Safety Report 4343099-3 (Version None)
Quarter: 2004Q2

REPORT INFORMATION
  Report Type: 
  Country: None (occurrence: None)
  Receive Date: 20040421
  Receipt Date: 20020313
  Transmission Date: 20050107
  Serious: Yes (Hospitalization)
  Sender: FDA-Public Use
  Company Number: US-GLAXOSMITHKLINE-A0362506B

PATIENT
  Age: 53 Year
  Sex: Male
  Weight: 113.2 kg

DRUGS (34)
  1. ORNADE [Suspect]
     Indication: NASOPHARYNGITIS
     Route: 048
     Dates: start: 19941031
  2. TAVIST D [Suspect]
     Indication: NASOPHARYNGITIS
     Route: 048
  3. DIAMOX [Concomitant]
  4. NORVASC [Concomitant]
     Indication: HYPERTENSION
     Dosage: 5MG PER DAY
     Route: 048
     Dates: start: 19960101
  5. HUMULIN R [Concomitant]
     Indication: DIABETES MELLITUS
  6. ALTACE [Concomitant]
     Indication: HYPERTENSION
     Dosage: 10MG TWICE PER DAY
     Route: 048
     Dates: start: 19960101
  7. CONTAC 12 HOUR [Concomitant]
     Indication: NASOPHARYNGITIS
     Route: 048
  8. DIURETICS [Concomitant]
     Dates: start: 20020101
  9. UNSPECIFIED MEDICATION [Concomitant]
     Dates: start: 19640101
  10. DIETARY SUPPLEMENT [Concomitant]
  11. UNIVASC [Concomitant]
     Route: 048
     Dates: start: 19971125
  12. PREDNISOLONE EYE DROPS [Concomitant]
     Route: 047
     Dates: start: 19980203, end: 20000101
  13. CYCLOGYL [Concomitant]
     Dates: start: 19980516
  14. ISOPTO HYOSCINE [Concomitant]
     Dates: start: 19980206
  15. VIAGRA [Concomitant]
     Route: 048
     Dates: start: 19981007
  16. HUMULIN N [Concomitant]
  17. CLONIDINE [Concomitant]
     Dates: start: 19990929
  18. SONATA [Concomitant]
     Dates: start: 19991108
  19. LEVAQUIN [Concomitant]
     Dates: start: 20000727
  20. PHENAZOPYRIDINE HCL TAB [Concomitant]
     Dates: start: 20000926
  21. NITROFURANTOIN [Concomitant]
     Dates: start: 20000926
  22. DOXY TABLETS [Concomitant]
     Dates: start: 20010220
  23. CIPRO [Concomitant]
     Dates: start: 20010419
  24. HYDROCHLOROTHIAZIDE [Concomitant]
     Dates: start: 20000323
  25. FLOMAX [Concomitant]
     Dates: start: 20010806
  26. IMIPRAMINE [Concomitant]
     Dates: start: 20011003
  27. CEPHALEXIN [Concomitant]
     Dates: start: 20011222
  28. DEMADEX [Concomitant]
     Dates: start: 20011224
  29. DEPO-TESTOSTERONE [Concomitant]
     Route: 030
  30. TROVAN [Concomitant]
     Indication: BRONCHITIS
     Dosage: 200MG TWICE PER DAY
     Route: 048
     Dates: start: 19990120
  31. BENADRYL COLD [Concomitant]
     Indication: UPPER RESPIRATORY TRACT INFECTION
     Route: 050
     Dates: start: 19940101
  32. AMOXICILLIN [Concomitant]
     Indication: UPPER RESPIRATORY TRACT INFECTION
     Dates: start: 19941031
  33. AVANDIA [Concomitant]
     Indication: DIABETES MELLITUS
     Dosage: 4MG PER DAY
     Route: 048
     Dates: start: 19990101
  34. CARDURA [Concomitant]

REACTIONS (17)
  - ATAXIA [None]
  - BALANCE DISORDER [None]
  - BLINDNESS UNILATERAL [None]
  - BURNING SENSATION [None]
  - CEREBROVASCULAR ACCIDENT [None]
  - DYSARTHRIA [None]
  - FACIAL PALSY [None]
  - FATIGUE [None]
  - FEELING ABNORMAL [None]
  - HEADACHE [None]
  - HEMIPARESIS [None]
  - HEMIPLEGIA [None]
  - HYPOAESTHESIA [None]
  - HYPOREFLEXIA [None]
  - PAIN [None]
  - TRANSIENT ISCHAEMIC ATTACK [None]
  - VISION BLURRED [None]
